FAERS Safety Report 10799199 (Version 1)
Quarter: 2015Q1

REPORT INFORMATION
  Report Type: Spontaneous
  Country: US (occurrence: US)
  Receive Date: 20150216
  Receipt Date: 20150216
  Transmission Date: 20150721
  Serious: No
  Sender: FDA-Public Use
  Company Number: US-ALLERGAN-1402391US

PATIENT
  Age: 70 Year
  Sex: Female

DRUGS (7)
  1. REFRESH PLUS [Concomitant]
     Active Substance: CARBOXYMETHYLCELLULOSE SODIUM
     Indication: DRY EYE
     Dosage: 1-2 GTT ,UNK TIMES DAILY
     Route: 047
  2. RESTASIS [Suspect]
     Active Substance: CYCLOSPORINE
     Indication: DRY EYE
     Dosage: 2 GTT, BID
     Route: 047
     Dates: end: 201312
  3. AMLODIPINE [Concomitant]
     Active Substance: AMLODIPINE BESYLATE
     Indication: HYPERTENSION
     Dosage: 5 MG, QD
     Route: 048
  4. DIOVAN [Concomitant]
     Active Substance: VALSARTAN
     Indication: HYPERTENSION
     Dosage: 320 MG, QD
     Route: 048
  5. PULMACORT [Concomitant]
     Indication: ASTHMA
     Dosage: 180 ?G, QD
     Route: 055
  6. MVI [Concomitant]
     Active Substance: VITAMINS
     Indication: SUPPLEMENTATION THERAPY
     Dosage: UNK
  7. CHONDROITIN SULFATE (BOVINE)\GLUCOSAMINE SULFATE [Concomitant]
     Active Substance: CHONDROITIN SULFATE (BOVINE)\GLUCOSAMINE SULFATE
     Indication: ARTHRITIS

REACTIONS (8)
  - Lacrimation increased [Unknown]
  - Incorrect product storage [Unknown]
  - Ocular hyperaemia [Recovered/Resolved]
  - Eye irritation [Unknown]
  - Multiple use of single-use product [Unknown]
  - Ocular hyperaemia [Recovered/Resolved]
  - Eyelid thickening [Unknown]
  - Eye pruritus [Unknown]

NARRATIVE: CASE EVENT DATE: 201312
